FAERS Safety Report 23238026 (Version 1)
Quarter: 2023Q4

REPORT INFORMATION
  Report Type: Spontaneous
  Country: BY (occurrence: BY)
  Receive Date: 20231129
  Receipt Date: 20231129
  Transmission Date: 20240110
  Serious: Yes (Hospitalization)
  Sender: FDA-Public Use
  Company Number: BY-drreddys-LIT/BEL/23/0187419

PATIENT
  Age: 76 Year
  Sex: Female

DRUGS (3)
  1. AMLODIPINE [Suspect]
     Active Substance: AMLODIPINE BESYLATE
     Indication: Product used for unknown indication
  2. PERINDOPRIL [Suspect]
     Active Substance: PERINDOPRIL
     Indication: Product used for unknown indication
  3. ATORVASTATIN [Suspect]
     Active Substance: ATORVASTATIN
     Indication: Product used for unknown indication

REACTIONS (7)
  - Myocardial fibrosis [Recovering/Resolving]
  - Pancreatitis chronic [Recovering/Resolving]
  - Renal cyst [Recovering/Resolving]
  - Hypertension [Recovering/Resolving]
  - Cardiac failure [Recovering/Resolving]
  - Cervical dysplasia [Recovering/Resolving]
  - Aortic arteriosclerosis [Recovering/Resolving]
